FAERS Safety Report 13113552 (Version 1)
Quarter: 2017Q1

REPORT INFORMATION
  Report Type: Spontaneous
  Country: CA (occurrence: CA)
  Receive Date: 20170113
  Receipt Date: 20170113
  Transmission Date: 20170428
  Serious: Yes (Other)
  Sender: FDA-Public Use
  Company Number: CA-NOVOPROD-526094

PATIENT
  Age: 45 Year
  Sex: Female
  Weight: 59 kg

DRUGS (9)
  1. LANTUS [Suspect]
     Active Substance: INSULIN GLARGINE
     Indication: DIABETES MELLITUS
     Dosage: DOSAGE FORM: SOLUTION
     Route: 058
  2. MIRENA [Concomitant]
     Active Substance: LEVONORGESTREL
     Dosage: DOSAGE FORM: INSERT (EXTENDED-RELEASE)
     Route: 065
  3. INVOKANA [Suspect]
     Active Substance: CANAGLIFLOZIN
     Indication: DIABETES MELLITUS
     Dosage: 300 MG (DOSAGE FORM: TABLET)
     Route: 048
  4. PIOGLITAZONE HYDROCHLORIDE. [Concomitant]
     Active Substance: PIOGLITAZONE HYDROCHLORIDE
     Indication: DIABETES MELLITUS
     Dosage: UNK
     Route: 048
  5. SYNTHROID [Concomitant]
     Active Substance: LEVOTHYROXINE SODIUM
     Dosage: 125 MG, QD
     Route: 065
  6. NOVORAPID [Suspect]
     Active Substance: INSULIN ASPART
     Indication: DIABETES MELLITUS
     Dosage: 26 IU
     Route: 058
  7. INSULIN [Concomitant]
     Active Substance: INSULIN NOS
     Dosage: UNK
     Route: 058
  8. INVOKANA [Suspect]
     Active Substance: CANAGLIFLOZIN
     Dosage: 200 MG, QD (DOSAGE FORM: TABLET; THERAPY DURATION: 5 DAYS)
     Route: 048
  9. METFORMIN [Concomitant]
     Active Substance: METFORMIN HYDROCHLORIDE
     Indication: DIABETES MELLITUS
     Dosage: UNK
     Route: 048

REACTIONS (5)
  - Weight decreased [Recovered/Resolved]
  - Drug hypersensitivity [Recovered/Resolved]
  - Off label use [Recovered/Resolved]
  - Incorrect dose administered [Recovered/Resolved]
  - Diabetic ketoacidosis [Recovered/Resolved]
